FAERS Safety Report 15115144 (Version 1)
Quarter: 2018Q2

REPORT INFORMATION
  Report Type: Spontaneous
  Country: US (occurrence: US)
  Receive Date: 20180612
  Receipt Date: 20180612
  Transmission Date: 20180711
  Serious: Yes (Life-Threatening, Disabling)
  Sender: FDA-Public Use
  Company Number: None

PATIENT
  Age: 26 Year
  Sex: Male
  Weight: 90 kg

DRUGS (2)
  1. CIPROFLOXACIN. [Suspect]
     Active Substance: CIPROFLOXACIN
     Indication: PYREXIA
     Dosage: ?          QUANTITY:14 TABLET(S);?
     Route: 048
     Dates: start: 20180522, end: 20180525
  2. CIPROFLOXACIN. [Suspect]
     Active Substance: CIPROFLOXACIN
     Indication: NAUSEA
     Dosage: ?          QUANTITY:14 TABLET(S);?
     Route: 048
     Dates: start: 20180522, end: 20180525

REACTIONS (22)
  - Pharyngeal oedema [None]
  - Chills [None]
  - Tendon pain [None]
  - Anxiety [None]
  - Dyspnoea [None]
  - Pain in jaw [None]
  - Heart rate abnormal [None]
  - Pain [None]
  - Chest pain [None]
  - Chest discomfort [None]
  - Vision blurred [None]
  - Shock symptom [None]
  - Stomatitis [None]
  - Pain in extremity [None]
  - Headache [None]
  - Pollakiuria [None]
  - Bowel movement irregularity [None]
  - Ear pain [None]
  - Tendon rupture [None]
  - Bedridden [None]
  - Toxicity to various agents [None]
  - Poisoning [None]

NARRATIVE: CASE EVENT DATE: 20180522
